FAERS Safety Report 23843342 (Version 1)
Quarter: 2024Q2

REPORT INFORMATION
  Report Type: Spontaneous
  Country: AR (occurrence: AR)
  Receive Date: 20240510
  Receipt Date: 20240510
  Transmission Date: 20240716
  Serious: Yes (Other)
  Sender: FDA-Public Use
  Company Number: AR-GLAXOSMITHKLINE-AR2024AMR057012

PATIENT

DRUGS (1)
  1. BENLYSTA [Suspect]
     Active Substance: BELIMUMAB
     Indication: Systemic lupus erythematosus
     Dosage: 200 MG, WE
     Route: 058
     Dates: start: 20190601

REACTIONS (3)
  - Ovarian cancer [Unknown]
  - Oophorectomy [Recovered/Resolved]
  - Salpingectomy [Recovered/Resolved]

NARRATIVE: CASE EVENT DATE: 20240301
